FAERS Safety Report 16125187 (Version 4)
Quarter: 2020Q1

REPORT INFORMATION
  Report Type: Report from Study
  Country: US (occurrence: US)
  Receive Date: 20190327
  Receipt Date: 20200215
  Transmission Date: 20200409
  Serious: Yes (Hospitalization)
  Sender: FDA-Public Use
  Company Number: PHHO2019US003092

PATIENT
  Age: 8 Year
  Sex: Male

DRUGS (12)
  1. METHOTREXATE SODIUM. [Suspect]
     Active Substance: METHOTREXATE SODIUM
     Dosage: 6900 MG, ONCE/SINGLE
     Route: 042
     Dates: start: 20190322
  2. INC424A [Suspect]
     Active Substance: RUXOLITINIB
     Indication: ACUTE LYMPHOCYTIC LEUKAEMIA
     Dosage: 70 MG, BID
     Route: 048
     Dates: start: 20181120, end: 20190228
  3. MERCAPTOPURINE. [Concomitant]
     Active Substance: MERCAPTOPURINE
     Dosage: UNK
     Route: 048
     Dates: end: 20190308
  4. INC424A [Suspect]
     Active Substance: RUXOLITINIB
     Dosage: 70 MG, BID
     Route: 048
     Dates: start: 20190322
  5. CYCLOPHOSPHAMIDE. [Concomitant]
     Active Substance: CYCLOPHOSPHAMIDE
     Indication: ACUTE LYMPHOCYTIC LEUKAEMIA
     Dosage: 1400 MG, ONCE/SINGLE
     Route: 042
     Dates: start: 20181120, end: 20190103
  6. VINCRISTINE [Concomitant]
     Active Substance: VINCRISTINE
     Indication: ACUTE LYMPHOCYTIC LEUKAEMIA
     Dosage: 2 MG, ONCE/SINGLE
     Route: 042
     Dates: start: 20181204, end: 20190301
  7. PEGASPARGASE [Concomitant]
     Active Substance: PEGASPARGASE
     Indication: ACUTE LYMPHOCYTIC LEUKAEMIA
     Dosage: 3600 IU, ONCE/SINGLE
     Route: 042
     Dates: start: 20181204, end: 20190117
  8. METHOTREXATE SODIUM. [Suspect]
     Active Substance: METHOTREXATE SODIUM
     Dosage: 6900 MG, ONCE/SINGLE
     Route: 042
     Dates: start: 20190215, end: 20190301
  9. MERCAPTOPURINE. [Concomitant]
     Active Substance: MERCAPTOPURINE
     Indication: ACUTE LYMPHOCYTIC LEUKAEMIA
     Dosage: 600 MG, QW
     Route: 048
     Dates: start: 20181120, end: 20190117
  10. METHOTREXATE SODIUM. [Suspect]
     Active Substance: METHOTREXATE SODIUM
     Indication: ACUTE LYMPHOCYTIC LEUKAEMIA
     Dosage: 12 MG, ONCE/SINGLE
     Route: 037
     Dates: start: 20181120, end: 20190215
  11. CYTARABINE. [Concomitant]
     Active Substance: CYTARABINE
     Indication: ACUTE LYMPHOCYTIC LEUKAEMIA
     Dosage: 110 MG, ONCE/SINGLE
     Route: 042
     Dates: start: 20181120, end: 20190110
  12. LEUCOVORIN. [Concomitant]
     Active Substance: LEUCOVORIN
     Indication: ACUTE LYMPHOCYTIC LEUKAEMIA
     Dosage: 21 MG, ONCE/SINGLE
     Route: 042
     Dates: start: 20190217, end: 20190303

REACTIONS (1)
  - Hemiparesis [Recovered/Resolved]

NARRATIVE: CASE EVENT DATE: 20190309
